FAERS Safety Report 7149392-3 (Version None)
Quarter: 2010Q4

REPORT INFORMATION
  Report Type: 
  Country: None (occurrence: None)
  Receive Date: 20101209
  Receipt Date: 20101206
  Transmission Date: 20110411
  Serious: Yes (Death)
  Sender: FDA-Public Use
  Company Number: BR-ABBOTT-10P-020-0667617-00

PATIENT
  Sex: Male
  Weight: 62 kg

DRUGS (3)
  1. HUMIRA [Suspect]
     Indication: ANKYLOSING SPONDYLITIS
     Route: 058
     Dates: start: 20100201, end: 20101114
  2. ENALAPRIL MALEATE AND HYDROCHLOROTHIAZIDE [Concomitant]
     Indication: HYPERTENSION
     Dosage: 12.5MG
     Route: 048
  3. ENALAPRIL [Concomitant]
     Indication: HYPERTENSION
     Route: 048

REACTIONS (16)
  - ACUTE RESPIRATORY FAILURE [None]
  - ASTHENIA [None]
  - CARDIO-RESPIRATORY ARREST [None]
  - COUGH [None]
  - DYSPHAGIA [None]
  - HYPOPHAGIA [None]
  - INFLUENZA [None]
  - LARYNGEAL MASS [None]
  - MALAISE [None]
  - NASOPHARYNGITIS [None]
  - NECK MASS [None]
  - OROPHARYNGEAL PAIN [None]
  - PHARYNGEAL DISORDER [None]
  - PHARYNGEAL INFLAMMATION [None]
  - PHARYNGEAL MASS [None]
  - PHARYNGITIS [None]
